FAERS Safety Report 14103278 (Version 6)
Quarter: 2018Q2

REPORT INFORMATION
  Report Type: Report from Study
  Country: IE (occurrence: IE)
  Receive Date: 20171018
  Receipt Date: 20180409
  Transmission Date: 20180711
  Serious: Yes (Hospitalization, Other)
  Sender: FDA-Public Use
  Company Number: IE-PFIZER INC-2017429888

PATIENT
  Age: 18 Year
  Sex: Male
  Weight: 60 kg

DRUGS (11)
  1. AZITHROMYCIN ANHYDROUS. [Concomitant]
     Active Substance: AZITHROMYCIN ANHYDROUS
     Indication: CYSTIC FIBROSIS
     Dosage: 500 MG, THREE TIMES A WEEK (MONDAY, WEDNESDAY AND FRIDAY)
  2. TAZOCIN [Suspect]
     Active Substance: PIPERACILLIN SODIUM\TAZOBACTAM SODIUM
     Dosage: 4.5 G, UNK
     Route: 042
     Dates: end: 20170915
  3. ORKAMBI [Suspect]
     Active Substance: IVACAFTOR\LUMACAFTOR
     Dosage: 2 DF, 2X/DAY
     Route: 048
     Dates: start: 20170920, end: 20170920
  4. ADEK [Concomitant]
     Indication: VITAMIN SUPPLEMENTATION
     Dosage: 1 DF, 1X/DAY
  5. PULMOZYME [Concomitant]
     Active Substance: DORNASE ALFA
     Indication: CYSTIC FIBROSIS
     Dosage: 2.5 MG, 1X/DAY
  6. CREON [Concomitant]
     Active Substance: PANCRELIPASE AMYLASE\PANCRELIPASE LIPASE\PANCRELIPASE PROTEASE
     Indication: ENZYME SUPPLEMENTATION
     Dosage: UNK (ONE BEFORE AND DURING MEALS )
  7. TAZOCIN [Suspect]
     Active Substance: PIPERACILLIN SODIUM\TAZOBACTAM SODIUM
     Indication: LOWER RESPIRATORY TRACT INFECTION
     Dosage: 4.5 G, 3X/DAY
     Route: 042
     Dates: start: 20170824, end: 20170908
  8. ORKAMBI [Suspect]
     Active Substance: IVACAFTOR\LUMACAFTOR
     Indication: CYSTIC FIBROSIS
     Dosage: 2 DF, 2X/DAY
     Route: 048
     Dates: start: 20170831, end: 20170910
  9. NEBUSAL [Concomitant]
     Active Substance: SODIUM CHLORIDE
     Indication: CYSTIC FIBROSIS
     Dosage: 1 DF, 1X/DAY
  10. BECLOMETHASONE [Concomitant]
     Active Substance: BECLOMETHASONE
     Indication: CYSTIC FIBROSIS
     Dosage: 50 UG, 1X/DAY
  11. TOBRAMYCIN. [Concomitant]
     Active Substance: TOBRAMYCIN
     Dosage: UNK
     Route: 042
     Dates: start: 20170820, end: 20170908

REACTIONS (6)
  - Rash erythematous [Recovered/Resolved]
  - Rash generalised [Recovered/Resolved]
  - Infective pulmonary exacerbation of cystic fibrosis [Recovering/Resolving]
  - Stevens-Johnson syndrome [Recovered/Resolved]
  - Toxic epidermal necrolysis [Recovered/Resolved]
  - Rash [Recovered/Resolved]

NARRATIVE: CASE EVENT DATE: 2017
